FAERS Safety Report 7502313-3 (Version None)
Quarter: 2011Q2

REPORT INFORMATION
  Report Type: 
  Country: None (occurrence: None)
  Receive Date: 20110523
  Receipt Date: 20110523
  Transmission Date: 20111010
  Serious: Yes (Other)
  Sender: FDA-Public Use
  Company Number: None

PATIENT
  Age: 36 Year
  Sex: Male
  Weight: 110.2241 kg

DRUGS (3)
  1. SERTRALINE HYDROCHLORIDE [Suspect]
     Indication: ANXIETY
     Dosage: 100MG  QAM PO
     Route: 048
     Dates: start: 20110519, end: 20110519
  2. SERTRALINE HYDROCHLORIDE [Suspect]
     Indication: POST-TRAUMATIC STRESS DISORDER
     Dosage: 100MG  QAM PO
     Route: 048
     Dates: start: 20110519, end: 20110519
  3. SERTRALINE HYDROCHLORIDE [Suspect]
     Indication: DEPRESSION
     Dosage: 100MG  QAM PO
     Route: 048
     Dates: start: 20110519, end: 20110519

REACTIONS (1)
  - SEDATION [None]
